FAERS Safety Report 4690282-3 (Version None)
Quarter: 2005Q2

REPORT INFORMATION
  Report Type: 
  Country: None (occurrence: None)
  Receive Date: 20050615
  Receipt Date: 20041203
  Transmission Date: 20051028
  Serious: Yes (Other)
  Sender: FDA-Public Use
  Company Number: GB-GLAXOSMITHKLINE-B0359618A

PATIENT
  Sex: Male

DRUGS (7)
  1. SEROXAT [Suspect]
     Indication: DEPRESSION
     Route: 065
     Dates: start: 19990401
  2. BACLOFEN [Concomitant]
  3. TIZANIDINE HCL [Concomitant]
  4. DANTROLENE [Concomitant]
  5. HALOPERIDOL [Concomitant]
  6. PROPRANOLOL [Concomitant]
  7. SILDENAFIL CITRATE [Concomitant]

REACTIONS (7)
  - AGGRESSION [None]
  - DRUG WITHDRAWAL SYNDROME [None]
  - ERECTILE DYSFUNCTION [None]
  - HEADACHE [None]
  - IMPULSE-CONTROL DISORDER [None]
  - NAUSEA [None]
  - SUICIDAL IDEATION [None]
